FAERS Safety Report 4964957-2 (Version None)
Quarter: 2006Q1

REPORT INFORMATION
  Report Type: 
  Country: None (occurrence: None)
  Receive Date: 20060201
  Receipt Date: 20051007
  Transmission Date: 20060701
  Serious: No
  Sender: FDA-Public Use
  Company Number: FACT0500568

PATIENT
  Age: 51 Year
  Sex: Male
  Weight: 95.7 kg

DRUGS (3)
  1. FACTIVE [Suspect]
     Indication: RESPIRATORY TRACT INFECTION BACTERIAL
     Dosage: ORAL
     Route: 048
     Dates: start: 20050822, end: 20050827
  2. AVAPRO [Concomitant]
  3. PROTONIX [Concomitant]

REACTIONS (2)
  - JOINT SWELLING [None]
  - RASH GENERALISED [None]
